FAERS Safety Report 17591867 (Version 3)
Quarter: 2021Q3

REPORT INFORMATION
  Report Type: Spontaneous
  Country: JP (occurrence: JP)
  Receive Date: 20200327
  Receipt Date: 20210716
  Transmission Date: 20211014
  Serious: Yes (Hospitalization, Other)
  Sender: FDA-Public Use
  Company Number: JP-ASTRAZENECA-2020SE41422

PATIENT
  Age: 49 Year
  Sex: Female
  Weight: 45 kg

DRUGS (5)
  1. LYNPARZA [Suspect]
     Active Substance: OLAPARIB
     Indication: BREAST CANCER
     Route: 048
     Dates: start: 20200218, end: 20200317
  2. FASLODEX [Suspect]
     Active Substance: FULVESTRANT
     Route: 030
     Dates: start: 20200728, end: 20200929
  3. LYNPARZA [Suspect]
     Active Substance: OLAPARIB
     Indication: BREAST CANCER
     Route: 048
     Dates: start: 20200519, end: 20200529
  4. LYNPARZA [Suspect]
     Active Substance: OLAPARIB
     Route: 048
     Dates: start: 20210104
  5. DECADRON [Concomitant]
     Active Substance: DEXAMETHASONE
     Dosage: DOSE AND FREQUENCY UNKNOWN
     Route: 065

REACTIONS (7)
  - Interstitial lung disease [Unknown]
  - Coronavirus infection [Unknown]
  - Nausea [Unknown]
  - Pneumonia [Unknown]
  - Pneumocystis jirovecii pneumonia [Unknown]
  - Pyrexia [Unknown]
  - Tumour marker increased [Unknown]

NARRATIVE: CASE EVENT DATE: 2020
